FAERS Safety Report 10588875 (Version 2)
Quarter: 2015Q4

REPORT INFORMATION
  Report Type: Spontaneous
  Country: US (occurrence: US)
  Receive Date: 20141117
  Receipt Date: 20151116
  Transmission Date: 20160304
  Serious: Yes (Other)
  Sender: FDA-Public Use
  Company Number: US-ASTRAZENECA-2014SE74485

PATIENT
  Age: 64 Year
  Sex: Female

DRUGS (7)
  1. PRILOSEC [Suspect]
     Active Substance: OMEPRAZOLE MAGNESIUM
     Route: 048
  2. MAALOX ANTACID [Concomitant]
     Active Substance: ALUMINUM HYDROXIDE\DIMETHICONE\MAGNESIUM HYDROXIDE
  3. ZANTAC [Concomitant]
     Active Substance: RANITIDINE HYDROCHLORIDE
     Indication: GASTROOESOPHAGEAL REFLUX DISEASE
     Dosage: 150 AS NEEDED
  4. NEXIUM [Suspect]
     Active Substance: ESOMEPRAZOLE MAGNESIUM
     Indication: GASTROOESOPHAGEAL REFLUX DISEASE
     Route: 048
  5. ARIMIDEX [Suspect]
     Active Substance: ANASTROZOLE
     Dosage: GENERIC, 1 MG DAILY
     Route: 065
  6. CARAFATE [Concomitant]
     Active Substance: SUCRALFATE
  7. ZANTAC [Concomitant]
     Active Substance: RANITIDINE HYDROCHLORIDE
     Indication: GASTROOESOPHAGEAL REFLUX DISEASE
     Dosage: DAILY

REACTIONS (27)
  - Gastrooesophageal reflux disease [Unknown]
  - Malaise [Unknown]
  - Irritable bowel syndrome [Unknown]
  - Diarrhoea [Unknown]
  - Adverse drug reaction [Unknown]
  - Bone loss [Unknown]
  - Gastritis [Unknown]
  - Hot flush [Unknown]
  - Dyskinesia [Unknown]
  - Hiatus hernia [Unknown]
  - Tremor [Unknown]
  - Muscle twitching [Unknown]
  - Crying [Unknown]
  - Abdominal pain upper [Unknown]
  - Drug ineffective [Unknown]
  - Anxiety [Unknown]
  - Osteoporosis [Unknown]
  - Insomnia [Unknown]
  - Dizziness [Unknown]
  - Hip fracture [Unknown]
  - Pulmonary mass [Unknown]
  - Pain [Unknown]
  - Thinking abnormal [Unknown]
  - Abdominal distension [Unknown]
  - Depression [Unknown]
  - Feeling jittery [Unknown]
  - Hyperchlorhydria [Unknown]

NARRATIVE: CASE EVENT DATE: 201306
